FAERS Safety Report 25922864 (Version 2)
Quarter: 2025Q4

REPORT INFORMATION
  Report Type: Report from Study
  Country: US (occurrence: US)
  Receive Date: 20251015
  Receipt Date: 20251107
  Transmission Date: 20260117
  Serious: No
  Sender: BOEHRINGER INGELHEIM
  Company Number: US-BoehringerIngelheim-2025-BI-101363

PATIENT
  Age: 36 Year
  Sex: Male

DRUGS (1)
  1. HERNEXEOS [Suspect]
     Active Substance: ZONGERTINIB
     Indication: Lung neoplasm malignant

REACTIONS (3)
  - Haematochezia [Recovered/Resolved]
  - Weight fluctuation [Unknown]
  - Product storage error [Recovering/Resolving]

NARRATIVE: CASE EVENT DATE: 20251014
